FAERS Safety Report 12781213 (Version 2)
Quarter: 2016Q4

REPORT INFORMATION
  Report Type: Report from Study
  Country: PL (occurrence: PL)
  Receive Date: 20160926
  Receipt Date: 20161031
  Transmission Date: 20170207
  Serious: Yes (Other)
  Sender: FDA-Public Use
  Company Number: PL-OTSUKA-2016_022675

PATIENT
  Age: 40 Year
  Sex: Female
  Weight: 57.4 kg

DRUGS (15)
  1. CLONIDINI [Concomitant]
     Indication: HYPERTENSION
     Dosage: 37.5 ?G, QID
     Route: 048
     Dates: start: 20150802, end: 20150819
  2. PARACETAMOLUM [Concomitant]
     Active Substance: ACETAMINOPHEN
     Indication: RENAL PAIN
     Dosage: 500 MG, (IF NECESSARY)
     Route: 048
     Dates: start: 2013
  3. TOLVAPTAN [Suspect]
     Active Substance: TOLVAPTAN
     Dosage: PLACEBO, QD (IN MORNING)
     Route: 048
     Dates: start: 20151106, end: 20151113
  4. TOLVAPTAN [Suspect]
     Active Substance: TOLVAPTAN
     Dosage: 15MG, QD (IN EVENING)
     Route: 048
     Dates: start: 20151114, end: 20151116
  5. PANTOPRAZOLUM [Concomitant]
     Indication: GASTRITIS PROPHYLAXIS
     Dosage: 20 MG, QD
     Route: 048
     Dates: start: 20150728
  6. DROTAVERINI CHYDROCHLORIDUM [Concomitant]
     Indication: RENAL PAIN
     Dosage: 80 MG, (IF NECESSARY)
     Route: 048
     Dates: start: 2013
  7. TOLVAPTAN [Suspect]
     Active Substance: TOLVAPTAN
     Indication: CONGENITAL CYSTIC KIDNEY DISEASE
     Dosage: 60 MG, QD (IN MORNING)
     Route: 048
     Dates: start: 20151121, end: 20151126
  8. TOLVAPTAN [Suspect]
     Active Substance: TOLVAPTAN
     Dosage: 45 MG, QD (IN MORNING)
     Route: 048
     Dates: start: 20151117, end: 20151120
  9. TOLVAPTAN [Suspect]
     Active Substance: TOLVAPTAN
     Dosage: 15 MG, QD (IN EVENING)
     Route: 048
     Dates: start: 20151117, end: 20151120
  10. TOLVAPTAN [Suspect]
     Active Substance: TOLVAPTAN
     Dosage: 30MG,QD (IN MORNING)
     Route: 048
     Dates: start: 20151114, end: 20151116
  11. RAMIPRILUM [Concomitant]
     Indication: HYPERTENSION
     Dosage: 5 MG, QD
     Route: 048
     Dates: start: 20151128
  12. TOLVAPTAN [Suspect]
     Active Substance: TOLVAPTAN
     Dosage: 30 MG, QD (IN EVENING)
     Route: 048
     Dates: start: 20151121, end: 20151126
  13. TOLVAPTAN [Suspect]
     Active Substance: TOLVAPTAN
     Dosage: PLACEBO, QD (IN EVENING)
     Route: 048
     Dates: start: 20151106, end: 20151113
  14. CLONIDINI [Concomitant]
     Dosage: 75 ?G, TID
     Route: 065
     Dates: start: 20151120
  15. QLAIRA [Concomitant]
     Active Substance: DIENOGEST\ESTRADIOL VALERATE
     Indication: ORAL CONTRACEPTION
     Dosage: 1 DF, QD
     Route: 048
     Dates: start: 2010

REACTIONS (1)
  - Gastritis [Recovered/Resolved]

NARRATIVE: CASE EVENT DATE: 20151121
